FAERS Safety Report 12819694 (Version 1)
Quarter: 2016Q4

REPORT INFORMATION
  Report Type: Report from Study
  Country: US (occurrence: US)
  Receive Date: 20161006
  Receipt Date: 20161006
  Transmission Date: 20170207
  Serious: No
  Sender: FDA-Public Use
  Company Number: US-AMGEN-USASL2016006827

PATIENT
  Age: 65 Year
  Sex: Female

DRUGS (1)
  1. PROLIA [Suspect]
     Active Substance: DENOSUMAB
     Indication: PRODUCT USED FOR UNKNOWN INDICATION
     Dosage: UNK
     Route: 065

REACTIONS (8)
  - Pruritus genital [Unknown]
  - Perineal pain [Unknown]
  - Dyschezia [Unknown]
  - Perineal rash [Not Recovered/Not Resolved]
  - Ear discomfort [Unknown]
  - Dyskinesia [Unknown]
  - Dysuria [Unknown]
  - Insomnia [Unknown]

NARRATIVE: CASE EVENT DATE: 20151228
